FAERS Safety Report 7438294-0 (Version None)
Quarter: 2011Q2

REPORT INFORMATION
  Report Type: 
  Country: None (occurrence: None)
  Receive Date: 20110426
  Receipt Date: 20110415
  Transmission Date: 20111010
  Serious: Yes (Hospitalization)
  Sender: FDA-Public Use
  Company Number: US-SHIRE-SPV1-2011-00647

PATIENT
  Sex: Female
  Weight: 92.971 kg

DRUGS (5)
  1. ADDERALL XR 10 [Suspect]
     Indication: ATTENTION DEFICIT/HYPERACTIVITY DISORDER
     Dosage: UNK, UNKNOWN
     Route: 065
     Dates: start: 20090401, end: 20090401
  2. LYRICA [Concomitant]
     Indication: PRODUCT USED FOR UNKNOWN INDICATION
     Dosage: 75 MG, 1X/DAY:QD
     Route: 048
     Dates: start: 20040101
  3. TRANXENE [Concomitant]
     Indication: PRODUCT USED FOR UNKNOWN INDICATION
     Dosage: 50 MG, 1X/DAY:QD
     Route: 048
  4. PREMARIN [Concomitant]
     Indication: HORMONE REPLACEMENT THERAPY
     Dosage: 0.9 MG, 1X/DAY:QD
     Route: 048
     Dates: start: 20040101
  5. SYNTHROID [Concomitant]
     Indication: HYPOTHYROIDISM
     Dosage: 0.1 MG, 1X/DAY:QD
     Route: 048

REACTIONS (9)
  - HALLUCINATION [None]
  - HIP ARTHROPLASTY [None]
  - BALANCE DISORDER [None]
  - URINARY INCONTINENCE [None]
  - DISINHIBITION [None]
  - FAECAL INCONTINENCE [None]
  - CONVULSION [None]
  - GAIT DISTURBANCE [None]
  - VIOLENCE-RELATED SYMPTOM [None]
